FAERS Safety Report 17812349 (Version 1)
Quarter: 2020Q2

REPORT INFORMATION
  Report Type: Spontaneous
  Country: FR (occurrence: FR)
  Receive Date: 20200521
  Receipt Date: 20200521
  Transmission Date: 20200714
  Serious: Yes (Life-Threatening)
  Sender: FDA-Public Use
  Company Number: FR-PFIZER INC-2020199194

PATIENT
  Age: 71 Year
  Sex: Male
  Weight: 90 kg

DRUGS (12)
  1. ZITHROMAX [Suspect]
     Active Substance: AZITHROMYCIN DIHYDRATE
     Indication: CORONAVIRUS INFECTION
     Dosage: 500 MG, 1X/DAY
     Route: 048
     Dates: start: 20200320, end: 20200324
  2. LEVOTHYROXINE SODIUM. [Concomitant]
     Active Substance: LEVOTHYROXINE SODIUM
     Dosage: UNK
     Dates: start: 20200319
  3. PLAQUENIL [HYDROXYCHLOROQUINE PHOSPHATE] [Interacting]
     Active Substance: HYDROXYCHLOROQUINE DIPHOSPHATE
     Indication: CORONAVIRUS INFECTION
     Dosage: 600 MG, 1X/DAY
     Route: 048
     Dates: start: 20200323, end: 20200324
  4. TAZOCILLINE [Concomitant]
     Active Substance: PIPERACILLIN SODIUM\TAZOBACTAM SODIUM
     Dosage: UNK
  5. RAPIFEN [ALFENTANIL HYDROCHLORIDE] [Concomitant]
     Dosage: UNK
     Dates: start: 20200322, end: 20200324
  6. VIALEBEX [Concomitant]
     Active Substance: ALBUMIN HUMAN
     Dosage: UNK
     Dates: start: 20200320
  7. PARACETAMOL [Concomitant]
     Active Substance: ACETAMINOPHEN
     Dosage: UNK
     Dates: start: 20200319, end: 20200325
  8. KARDEGIC [Concomitant]
     Active Substance: ASPIRIN DL-LYSINE
     Dosage: 75 MG
     Dates: start: 20200319
  9. HYPNOVEL [MIDAZOLAM HYDROCHLORIDE] [Concomitant]
     Active Substance: MIDAZOLAM HYDROCHLORIDE
     Dosage: UNK
     Dates: start: 20200322
  10. HEPARIN SODIUM. [Concomitant]
     Active Substance: HEPARIN SODIUM
     Dosage: UNK
     Dates: start: 20200323
  11. FOLIC ACID. [Concomitant]
     Active Substance: FOLIC ACID
     Dosage: UNK
     Dates: start: 20200319
  12. SUFENTA [Concomitant]
     Active Substance: SUFENTANIL CITRATE
     Dosage: UNK
     Dates: start: 20200322, end: 20200324

REACTIONS (6)
  - Off label use [Unknown]
  - Electrocardiogram QT prolonged [Recovered/Resolved]
  - Product use in unapproved indication [Unknown]
  - Drug interaction [Recovered/Resolved]
  - Ventricular tachycardia [Recovered/Resolved]
  - Ventricular extrasystoles [Recovered/Resolved]

NARRATIVE: CASE EVENT DATE: 20200324
